FAERS Safety Report 9193707 (Version 3)
Quarter: 2013Q2

REPORT INFORMATION
  Report Type: Spontaneous
  Country: JP (occurrence: JP)
  Receive Date: 20130327
  Receipt Date: 20130412
  Transmission Date: 20140414
  Serious: Yes (Other)
  Sender: FDA-Public Use
  Company Number: JP-JNJFOC-20130315425

PATIENT
  Sex: 0

DRUGS (5)
  1. TRAMCET [Suspect]
     Indication: PRODUCT USED FOR UNKNOWN INDICATION
     Route: 048
  2. METGLUCO [Concomitant]
     Route: 065
  3. MICARDIS [Concomitant]
     Route: 065
  4. PRAVASTATIN SODIUM [Concomitant]
     Route: 065
  5. LYRICA [Concomitant]
     Route: 048

REACTIONS (2)
  - Renal impairment [Unknown]
  - Drug intolerance [Unknown]
